FAERS Safety Report 26055406 (Version 1)
Quarter: 2025Q4

REPORT INFORMATION
  Report Type: Spontaneous
  Country: US (occurrence: US)
  Receive Date: 20251117
  Receipt Date: 20251117
  Transmission Date: 20260118
  Serious: Yes (Death, Hospitalization)
  Sender: BIOGEN
  Company Number: US-BIOGEN-2089675

PATIENT
  Age: 52 Year
  Sex: Female

DRUGS (5)
  1. TYSABRI [Suspect]
     Active Substance: NATALIZUMAB
     Indication: Multiple sclerosis
     Dates: start: 20230322, end: 20250304
  2. TYSABRI [Suspect]
     Active Substance: NATALIZUMAB
     Dates: start: 20240226, end: 20250804
  3. TYSABRI [Suspect]
     Active Substance: NATALIZUMAB
     Dates: start: 20080529, end: 20081209
  4. TYSABRI [Suspect]
     Active Substance: NATALIZUMAB
     Dates: start: 20090527, end: 20120420
  5. TYSABRI [Suspect]
     Active Substance: NATALIZUMAB
     Dates: start: 20230414, end: 20231120

REACTIONS (2)
  - Progressive multifocal leukoencephalopathy [Fatal]
  - Wound [Unknown]
